FAERS Safety Report 7945870-5 (Version None)
Quarter: 2011Q4

REPORT INFORMATION
  Report Type: 
  Country: None (occurrence: None)
  Receive Date: 20111129
  Receipt Date: 20111121
  Transmission Date: 20120403
  Serious: Yes (Other)
  Sender: FDA-Public Use
  Company Number: PHHY2011MX102458

PATIENT
  Sex: Female

DRUGS (2)
  1. DIOVAN HCT [Suspect]
     Dosage: 1 TABLET  (300/12.5  MG) DAILY
     Dates: start: 20111102
  2. DIOVAN HCT [Suspect]
     Indication: HYPERTENSION
     Dosage: 1 TABLET  (80/12.5  MG) DAILY
     Dates: start: 20110130, end: 20111102

REACTIONS (1)
  - VIITH NERVE PARALYSIS [None]
